FAERS Safety Report 6843548-2 (Version None)
Quarter: 2010Q3

REPORT INFORMATION
  Report Type: 
  Country: None (occurrence: None)
  Receive Date: 20100712
  Receipt Date: 20100629
  Transmission Date: 20110219
  Serious: Yes (Hospitalization)
  Sender: FDA-Public Use
  Company Number: LEO-2010-00589

PATIENT
  Age: 81 Year
  Sex: Female
  Weight: 47 kg

DRUGS (5)
  1. INNOHEP [Suspect]
     Indication: ANGINA UNSTABLE
     Dosage: 10000 IU (10000 IU, 1 IN 1 D), SUBCUTANEOUS
     Route: 058
     Dates: start: 20100530, end: 20100603
  2. BISOPROLOL FUMARATE [Concomitant]
  3. MEMANTINE HCL [Concomitant]
  4. DIGOXIN [Concomitant]
  5. EQUANIL [Concomitant]

REACTIONS (3)
  - OFF LABEL USE [None]
  - OVERDOSE [None]
  - SPONTANEOUS HAEMATOMA [None]
